FAERS Safety Report 18683490 (Version 1)
Quarter: 2020Q4

REPORT INFORMATION
  Report Type: Spontaneous
  Country: US (occurrence: US)
  Receive Date: 20201230
  Receipt Date: 20201230
  Transmission Date: 20210114
  Serious: Yes (Disabling)
  Sender: FDA-Public Use
  Company Number: None

PATIENT
  Age: 38 Year
  Sex: Female
  Weight: 94.5 kg

DRUGS (19)
  1. TUMS [Concomitant]
     Active Substance: CALCIUM CARBONATE
  2. CELEXA [Concomitant]
     Active Substance: CITALOPRAM HYDROBROMIDE
  3. BENADRYL [Concomitant]
     Active Substance: DIPHENHYDRAMINE HYDROCHLORIDE
  4. MEMANTINE. [Concomitant]
     Active Substance: MEMANTINE
  5. MAXALT [Concomitant]
     Active Substance: RIZATRIPTAN BENZOATE
  6. ADDERALL [Concomitant]
     Active Substance: AMPHETAMINE ASPARTATE\AMPHETAMINE SULFATE\DEXTROAMPHETAMINE SACCHARATE\DEXTROAMPHETAMINE SULFATE
  7. NORCO [Concomitant]
     Active Substance: ACETAMINOPHEN\HYDROCODONE BITARTRATE
  8. ZOFRAN [Concomitant]
     Active Substance: ONDANSETRON HYDROCHLORIDE
  9. ANT-DIAHHREAL [Concomitant]
  10. LEVOFLOXACIN. [Suspect]
     Active Substance: LEVOFLOXACIN
     Indication: URINARY TRACT INFECTION
     Dosage: ?          QUANTITY:10 TABLET(S);?
     Route: 048
     Dates: start: 20000201, end: 20171006
  11. TYLENOL [Concomitant]
     Active Substance: ACETAMINOPHEN
  12. SUDAFED [Concomitant]
     Active Substance: PSEUDOEPHEDRINE HYDROCHLORIDE
  13. CIPROFLOXACIN. [Suspect]
     Active Substance: CIPROFLOXACIN
  14. VALTREX [Concomitant]
     Active Substance: VALACYCLOVIR HYDROCHLORIDE
  15. LYRICS [Concomitant]
  16. PROPRANOLOL [Concomitant]
     Active Substance: PROPRANOLOL HYDROCHLORIDE
  17. LIDOCAINE OINTMENT [Concomitant]
     Active Substance: LIDOCAINE
  18. XANAX [Concomitant]
     Active Substance: ALPRAZOLAM
  19. PEPTO-BISMOL [Concomitant]
     Active Substance: BISMUTH SUBSALICYLATE

REACTIONS (13)
  - Paraesthesia [None]
  - Fatigue [None]
  - Feeling abnormal [None]
  - Dry eye [None]
  - Pain [None]
  - Depression [None]
  - Teeth brittle [None]
  - Meniscus injury [None]
  - Fibromyalgia [None]
  - Gastric disorder [None]
  - Insomnia [None]
  - Anxiety [None]
  - Dry mouth [None]

NARRATIVE: CASE EVENT DATE: 20000201
